FAERS Safety Report 18764360 (Version 3)
Quarter: 2023Q4

REPORT INFORMATION
  Report Type: Spontaneous
  Country: US (occurrence: US)
  Receive Date: 20210120
  Receipt Date: 20231218
  Transmission Date: 20240109
  Serious: Yes (Other)
  Sender: FDA-Public Use
  Company Number: US-PFIZER INC-2021030282

PATIENT
  Age: 64 Year
  Sex: Female

DRUGS (2)
  1. XELJANZ XR [Suspect]
     Active Substance: TOFACITINIB CITRATE
     Indication: Rheumatoid arthritis
     Dosage: 11 MG, 1X/DAY
     Route: 048
     Dates: start: 2015
  2. XELJANZ XR [Suspect]
     Active Substance: TOFACITINIB CITRATE
     Indication: Psoriatic arthropathy
     Dosage: 11 MG, 1X/DAY
     Route: 048
     Dates: start: 2015, end: 202311

REACTIONS (8)
  - Anal squamous cell carcinoma [Unknown]
  - Squamous cell carcinoma [Unknown]
  - Product dose omission in error [Unknown]
  - Skin lesion [Unknown]
  - Pain [Unknown]
  - Respiratory tract infection [Unknown]
  - Cough [Not Recovered/Not Resolved]
  - Oropharyngeal pain [Recovered/Resolved]

NARRATIVE: CASE EVENT DATE: 20231129
